FAERS Safety Report 15230510 (Version 2)
Quarter: 2018Q3

REPORT INFORMATION
  Report Type: Spontaneous
  Country: US (occurrence: US)
  Receive Date: 20180802
  Receipt Date: 20180831
  Transmission Date: 20181010
  Serious: No
  Sender: FDA-Public Use
  Company Number: US-ASTRAZENECA-2018SE84263

PATIENT
  Sex: Female
  Weight: 50.8 kg

DRUGS (3)
  1. VENTOLIN [Concomitant]
     Active Substance: ALBUTEROL SULFATE
     Indication: INHALATION THERAPY
     Route: 055
  2. SYMBICORT [Suspect]
     Active Substance: BUDESONIDE\FORMOTEROL FUMARATE DIHYDRATE
     Indication: ASTHMA
     Dosage: 80/4.5MCG 2 PUFFS TWICE A DAY
     Route: 055
     Dates: start: 201712
  3. IRBESARTAN. [Concomitant]
     Active Substance: IRBESARTAN
     Indication: BLOOD PRESSURE ABNORMAL
     Route: 048

REACTIONS (2)
  - Asthma [Recovered/Resolved]
  - Device malfunction [Unknown]
